FAERS Safety Report 9475616 (Version 1)
Quarter: 2013Q3

REPORT INFORMATION
  Report Type: Spontaneous
  Country: US (occurrence: None)
  Receive Date: 20130822
  Receipt Date: 20130822
  Transmission Date: 20140515
  Serious: No
  Sender: FDA-Public Use
  Company Number: None

PATIENT
  Age: 60 Year
  Sex: Female

DRUGS (3)
  1. ALPHA.-LIPOIC ACID [Suspect]
     Indication: DIABETES PROPHYLAXIS
     Dosage: 1 CAPSULE 2X DAILY ORALLY
     Route: 048
  2. FISH OIL [Concomitant]
  3. VITAMIN D1000 [Concomitant]

REACTIONS (1)
  - Blood glucose increased [None]
